FAERS Safety Report 8178570-X (Version None)
Quarter: 2012Q1

REPORT INFORMATION
  Report Type: 
  Country: None (occurrence: None)
  Receive Date: 20120301
  Receipt Date: 20120220
  Transmission Date: 20120608
  Serious: Yes (Other)
  Sender: FDA-Public Use
  Company Number: US-ELI_LILLY_AND_COMPANY-US201109003610

PATIENT
  Sex: Female

DRUGS (6)
  1. FORTEO [Suspect]
     Indication: OSTEOPOROSIS
     Dosage: 20 UG, QD
     Dates: start: 20110824
  2. FORTEO [Suspect]
     Dosage: 20 UG, QD
  3. FORTEO [Suspect]
     Dosage: 20 UG, QD
  4. FORTEO [Suspect]
     Dosage: 20 UG, QD
  5. FORTEO [Suspect]
     Dosage: 20 UG, QD
  6. FORTEO [Suspect]
     Dosage: 20 UG, QD

REACTIONS (38)
  - VASCULAR CALCIFICATION [None]
  - URINE ODOUR ABNORMAL [None]
  - DISCOMFORT [None]
  - PAIN [None]
  - DEPRESSED MOOD [None]
  - DYSPNOEA [None]
  - DYSPEPSIA [None]
  - BRONCHIAL SECRETION RETENTION [None]
  - URINE COLOUR ABNORMAL [None]
  - ANXIETY [None]
  - HIATUS HERNIA [None]
  - BACK DISORDER [None]
  - CORONARY ARTERY OCCLUSION [None]
  - WEIGHT INCREASED [None]
  - VERTIGO [None]
  - MUSCULAR WEAKNESS [None]
  - VENOUS OCCLUSION [None]
  - CARDIAC OPERATION [None]
  - BONE DISORDER [None]
  - INJECTION SITE PAIN [None]
  - FOOD CRAVING [None]
  - LOSS OF CONTROL OF LEGS [None]
  - HYPOAESTHESIA [None]
  - HYPERTRICHOSIS [None]
  - MUSCULOSKELETAL DISCOMFORT [None]
  - ASTHMA [None]
  - ABDOMINAL DISTENSION [None]
  - DIZZINESS [None]
  - MUSCLE TWITCHING [None]
  - VOMITING [None]
  - PAIN IN EXTREMITY [None]
  - BLOOD CHOLESTEROL INCREASED [None]
  - ABDOMINAL WALL DISORDER [None]
  - CONTUSION [None]
  - FALL [None]
  - INJECTION SITE HAEMATOMA [None]
  - SENSATION OF HEAVINESS [None]
  - BACK PAIN [None]
